FAERS Safety Report 21725987 (Version 1)
Quarter: 2022Q4

REPORT INFORMATION
  Report Type: Spontaneous
  Country: US (occurrence: US)
  Receive Date: 20221214
  Receipt Date: 20221214
  Transmission Date: 20230113
  Serious: No
  Sender: FDA-Public Use
  Company Number: US-STRIDES ARCOLAB LIMITED-2022SP004127

PATIENT
  Age: 29 Year
  Sex: Female

DRUGS (4)
  1. PROPRANOLOL [Suspect]
     Active Substance: PROPRANOLOL HYDROCHLORIDE
     Indication: Long QT syndrome
     Dosage: 60 MILLIGRAM PER DAY
     Route: 065
     Dates: start: 20190515
  2. NADOLOL [Suspect]
     Active Substance: NADOLOL
     Indication: Long QT syndrome
     Dosage: UNK (TREATMENT STOPPED WHEN SHE BECAME PREGNANT   )
     Route: 065
     Dates: start: 2002, end: 201810
  3. MEXILETINE [Suspect]
     Active Substance: MEXILETINE
     Indication: Long QT syndrome
     Dosage: 150 MILLIGRAM,THREE TIMES DAILY
     Route: 065
     Dates: start: 20190504
  4. MIDODRINE [Suspect]
     Active Substance: MIDODRINE
     Indication: Orthostatic hypotension
     Dosage: UNK
     Route: 065

REACTIONS (2)
  - Maternal exposure during pregnancy [Unknown]
  - Off label use [Unknown]

NARRATIVE: CASE EVENT DATE: 20181001
